FAERS Safety Report 6803982-3 (Version None)
Quarter: 2010Q2

REPORT INFORMATION
  Report Type: 
  Country: None (occurrence: None)
  Receive Date: 20100628
  Receipt Date: 20060523
  Transmission Date: 20101027
  Serious: Yes (Other)
  Sender: FDA-Public Use
  Company Number: US-PFIZER INC-2006040828

PATIENT
  Age: 74 Year
  Sex: Female

DRUGS (4)
  1. SUTENT [Suspect]
     Indication: RENAL CANCER
     Route: 048
     Dates: start: 20060227
  2. DIOVANE [Concomitant]
     Indication: HYPERTENSION
     Route: 065
  3. ZOCOR [Concomitant]
     Indication: BLOOD CHOLESTEROL INCREASED
     Route: 065
  4. DYAZIDE [Concomitant]
     Indication: NEPHROLITHIASIS
     Route: 065

REACTIONS (6)
  - ADVERSE EVENT [None]
  - ASTHENIA [None]
  - BONE PAIN [None]
  - DECREASED APPETITE [None]
  - ORAL PAIN [None]
  - OROPHARYNGEAL BLISTERING [None]
